FAERS Safety Report 11444889 (Version 1)
Quarter: 2015Q3

REPORT INFORMATION
  Report Type: Spontaneous
  Country: US (occurrence: None)
  Receive Date: 20150831
  Receipt Date: 20150831
  Transmission Date: 20151125
  Serious: Yes (Life-Threatening, Hospitalization, Disabling)
  Sender: FDA-Public Use
  Company Number: None

PATIENT
  Age: 55 Year
  Sex: Male
  Weight: 67.59 kg

DRUGS (28)
  1. CALCIUM [Concomitant]
     Active Substance: CALCIUM
  2. DOCUSATE [Concomitant]
     Active Substance: DOCUSATE
  3. INSULIN GLARGINE [Concomitant]
     Active Substance: INSULIN GLARGINE
  4. RANOLAZINE HCL [Concomitant]
     Active Substance: RANOLAZINE HYDROCHLORIDE
  5. PRAVASTINE SODIUM [Concomitant]
  6. LANCET [Concomitant]
  7. METOCLOPRAMIAD [Concomitant]
  8. LEVOTHYROZINE [Concomitant]
  9. CARVEBOLA [Concomitant]
  10. METHOTREXATE [Suspect]
     Active Substance: METHOTREXATE
     Indication: ARTHRITIS
     Dosage: 8 PILLS
     Route: 048
     Dates: start: 19990101, end: 20150101
  11. ADALIMUMAB [Suspect]
     Active Substance: ADALIMUMAB
     Indication: RHEUMATOID ARTHRITIS
     Dosage: I PEN, EVERY 14 DAYS
     Route: 030
     Dates: start: 19990101, end: 20150101
  12. ORTHOPIDIC BRACE FOR FOOT AND LEG [Concomitant]
  13. ACCU-CHEK AVIVA PLUS TEST STRIPS [Concomitant]
  14. ALCOHOL PAD [Concomitant]
     Active Substance: ISOPROPYL ALCOHOL
  15. ASPRIN [Concomitant]
     Active Substance: ASPIRIN
  16. CYCLOBENZAPRINE [Concomitant]
     Active Substance: CYCLOBENZAPRINE
  17. LATANOPROST. [Concomitant]
     Active Substance: LATANOPROST
  18. ALBUTEROL. [Concomitant]
     Active Substance: ALBUTEROL
  19. FLUNISOLIDE. [Concomitant]
     Active Substance: FLUNISOLIDE
  20. FOLIC ACID. [Concomitant]
     Active Substance: FOLIC ACID
  21. HYDROCODONE [Concomitant]
     Active Substance: HYDROCODONE
  22. INSULIN ASPART HUMAN [Concomitant]
  23. ISOSORBIDE MONONITRATE. [Concomitant]
     Active Substance: ISOSORBIDE MONONITRATE
  24. MAGNISIM OXIDE [Concomitant]
  25. DORZOLAMIDE HCL 2% SOLUTION [Concomitant]
  26. INSULIN SYRINGE [Concomitant]
  27. PANTOPRAZOLE [Concomitant]
     Active Substance: PANTOPRAZOLE SODIUM
  28. NAPROXEN. [Concomitant]
     Active Substance: NAPROXEN

REACTIONS (1)
  - Bone cancer [None]

NARRATIVE: CASE EVENT DATE: 20141120
